FAERS Safety Report 10862140 (Version 2)
Quarter: 2015Q1

REPORT INFORMATION
  Report Type: Spontaneous
  Country: JP (occurrence: JP)
  Receive Date: 20150224
  Receipt Date: 20150303
  Transmission Date: 20150721
  Serious: Yes (Hospitalization)
  Sender: FDA-Public Use
  Company Number: JP-SA-2015SA021611

PATIENT
  Age: 78 Year
  Sex: Male

DRUGS (2)
  1. MYSLEE [Suspect]
     Active Substance: ZOLPIDEM TARTRATE
     Route: 048
  2. DEPAS [Suspect]
     Active Substance: ETIZOLAM
     Route: 048

REACTIONS (1)
  - Neuroleptic malignant syndrome [Recovering/Resolving]
